FAERS Safety Report 17156388 (Version 1)
Quarter: 2019Q4

REPORT INFORMATION
  Report Type: Spontaneous
  Country: US (occurrence: US)
  Receive Date: 20191216
  Receipt Date: 20191216
  Transmission Date: 20200122
  Serious: No
  Sender: FDA-Public Use
  Company Number: US-JNJFOC-20191209145

PATIENT
  Sex: Male

DRUGS (1)
  1. CHILDRENS MOTRIN [Suspect]
     Active Substance: IBUPROFEN
     Indication: PYREXIA
     Route: 065

REACTIONS (1)
  - Vomiting [Unknown]
